FAERS Safety Report 8885787 (Version 2)
Quarter: 2012Q4

REPORT INFORMATION
  Report Type: 
  Country: US (occurrence: US)
  Receive Date: 20121101
  Receipt Date: 20121213
  Transmission Date: 20130627
  Serious: Yes (Other)
  Sender: FDA-Public Use
  Company Number: PHHY2012US098809

PATIENT
  Age: 55 None
  Sex: Female
  Weight: 55.78 kg

DRUGS (5)
  1. GILENYA [Suspect]
     Indication: MULTIPLE SCLEROSIS
     Dosage: 0.5 mg, QD
     Route: 048
     Dates: start: 201108, end: 20120319
  2. GILENYA [Suspect]
     Dosage: 0.5 mg, QD
     Route: 048
     Dates: start: 201205
  3. CLONAZEPAM [Concomitant]
     Indication: ANXIETY
     Dosage: 0.5 mg (1-2 qhs)
     Route: 048
     Dates: start: 20090119
  4. LAMICTAL [Concomitant]
  5. PROTAMIN [Concomitant]

REACTIONS (4)
  - Blood disorder [Unknown]
  - Lymphocyte count decreased [Recovered/Resolved]
  - Neutropenia [Unknown]
  - CD4 lymphocytes decreased [Recovered/Resolved]
